FAERS Safety Report 7404173-8 (Version None)
Quarter: 2011Q1

REPORT INFORMATION
  Report Type: 
  Country: None (occurrence: None)
  Receive Date: 20110331
  Receipt Date: 20110321
  Transmission Date: 20110831
  Serious: Yes (Life-Threatening)
  Sender: FDA-Public Use
  Company Number: WAES 1103USA03135

PATIENT
  Sex: Male

DRUGS (9)
  1. NEVIRAPINE [Suspect]
     Indication: HIV INFECTION
     Dates: start: 20040601, end: 20110317
  2. AMPRENAVIR [Suspect]
     Indication: HIV INFECTION
     Dates: start: 20110307
  3. KALETRA [Suspect]
     Indication: HIV INFECTION
     Dates: start: 20110317, end: 20110318
  4. TAB RALTEGRAVIR POTASSIUM [Suspect]
     Indication: HIV INFECTION
     Dosage: PO
     Route: 048
     Dates: start: 20110307
  5. LOPINAVIR/RITONAVIR [Suspect]
     Indication: HIV INFECTION
     Dates: start: 20110307
  6. SULFAMETHOXAZOLE TRIMETHOPRIM [Suspect]
     Indication: HIV INFECTION
     Dates: start: 20040601
  7. LAMIVUDINE [Suspect]
     Indication: HIV INFECTION
     Dates: start: 20040601, end: 20110317
  8. STAVUDINE [Suspect]
     Indication: HIV INFECTION
     Dates: start: 20040601, end: 20110317
  9. CLARITHROMYCIN [Suspect]
     Indication: HIV INFECTION
     Dates: start: 20110307, end: 20110321

REACTIONS (1)
  - TUBERCULOSIS GASTROINTESTINAL [None]
